FAERS Safety Report 7074021-7 (Version None)
Quarter: 2010Q4

REPORT INFORMATION
  Report Type: 
  Country: None (occurrence: None)
  Receive Date: 20101029
  Receipt Date: 20101021
  Transmission Date: 20110411
  Serious: Yes (Other)
  Sender: FDA-Public Use
  Company Number: CZ-ABBOTT-10P-217-0680389-00

PATIENT
  Sex: Male
  Weight: 65 kg

DRUGS (2)
  1. KLACID [Suspect]
     Indication: BRONCHOPNEUMONIA
     Dates: start: 20100526, end: 20100609
  2. EUPHYLLIN [Concomitant]
     Indication: PRODUCT USED FOR UNKNOWN INDICATION

REACTIONS (1)
  - LUNG NEOPLASM [None]
